FAERS Safety Report 7324107-4 (Version None)
Quarter: 2011Q1

REPORT INFORMATION
  Report Type: 
  Country: None (occurrence: None)
  Receive Date: 20110217
  Receipt Date: 20110203
  Transmission Date: 20110831
  Serious: Yes (Hospitalization)
  Sender: FDA-Public Use
  Company Number: USA/USA/11/0017418

PATIENT
  Age: 25 Year
  Sex: Female

DRUGS (1)
  1. AMLODIPINE BESYLATE [Suspect]
     Indication: PRODUCT USED FOR UNKNOWN INDICATION
     Dosage: 30 DOSAGE FORMS, TOTAL

REACTIONS (9)
  - SINUS TACHYCARDIA [None]
  - HYPERDYNAMIC LEFT VENTRICLE [None]
  - PULMONARY ARTERIAL WEDGE PRESSURE INCREASED [None]
  - HYPOTENSION [None]
  - OVERDOSE [None]
  - VASCULAR RESISTANCE SYSTEMIC DECREASED [None]
  - CARDIAC INDEX INCREASED [None]
  - TOXICITY TO VARIOUS AGENTS [None]
  - NO THERAPEUTIC RESPONSE [None]
